FAERS Safety Report 25759982 (Version 1)
Quarter: 2025Q3

REPORT INFORMATION
  Report Type: Spontaneous
  Country: US (occurrence: US)
  Receive Date: 20250904
  Receipt Date: 20250904
  Transmission Date: 20251020
  Serious: Yes (Other)
  Sender: UCB
  Company Number: US-UCBSA-2025053854

PATIENT
  Age: 38 Year
  Sex: Female

DRUGS (12)
  1. LEVETIRACETAM [Suspect]
     Active Substance: LEVETIRACETAM
     Indication: Product used for unknown indication
     Dates: start: 20240823, end: 202408
  2. CEFTRIAXONE [Concomitant]
     Active Substance: CEFTRIAXONE
     Indication: Product used for unknown indication
     Dates: start: 20240823
  3. DEXAMETHASONE [Concomitant]
     Active Substance: DEXAMETHASONE
     Indication: Product used for unknown indication
     Dates: start: 20240823
  4. VENLAFAXINE [Concomitant]
     Active Substance: VENLAFAXINE HYDROCHLORIDE
     Indication: Affective disorder
     Dates: start: 202407, end: 20240809
  5. VENLAFAXINE [Concomitant]
     Active Substance: VENLAFAXINE HYDROCHLORIDE
     Dates: start: 20240823
  6. VALPROATE [Concomitant]
     Active Substance: VALPROIC ACID
     Indication: Product used for unknown indication
     Dates: start: 20240809, end: 20240820
  7. VALPROIC ACID [Concomitant]
     Active Substance: VALPROIC ACID
     Indication: Mental disorder
     Dates: start: 20240731
  8. MARINOL [Concomitant]
     Active Substance: DRONABINOL
     Indication: Mental disorder
     Dates: start: 20240731
  9. EFFEXOR [Concomitant]
     Active Substance: VENLAFAXINE HYDROCHLORIDE
     Indication: Mental disorder
     Dates: start: 20240731
  10. ZYPREXA [Concomitant]
     Active Substance: OLANZAPINE
     Indication: Mental disorder
     Dates: start: 20240731
  11. ZOLOFT [Concomitant]
     Active Substance: SERTRALINE HYDROCHLORIDE
     Indication: Mental disorder
     Dates: start: 20240731
  12. ESCITALOPRAM [Concomitant]
     Active Substance: ESCITALOPRAM OXALATE
     Indication: Mental disorder
     Dates: start: 20240731

REACTIONS (1)
  - Seizure [Unknown]

NARRATIVE: CASE EVENT DATE: 20240801
